FAERS Safety Report 18450755 (Version 4)
Quarter: 2020Q4

REPORT INFORMATION
  Report Type: Spontaneous
  Country: CO (occurrence: CO)
  Receive Date: 20201030
  Receipt Date: 20201201
  Transmission Date: 20210114
  Serious: Yes (Other)
  Sender: FDA-Public Use
  Company Number: CO-ROCHE-2700515

PATIENT
  Age: 68 Year
  Sex: Female
  Weight: 73.1 kg

DRUGS (1)
  1. AVASTIN [Suspect]
     Active Substance: BEVACIZUMAB
     Indication: OVARIAN CANCER
     Dosage: FREQUENCY: D1, 100 MG/ 4ML, VIAL 4 ML
     Route: 042

REACTIONS (12)
  - Pyrexia [Recovered/Resolved]
  - Suspected product contamination [Unknown]
  - Chest pain [Recovered/Resolved]
  - Infusion related reaction [Recovered/Resolved]
  - Flushing [Recovered/Resolved]
  - Anxiety [Recovered/Resolved]
  - Headache [Recovered/Resolved]
  - Malaise [Recovered/Resolved]
  - Suspected product quality issue [Unknown]
  - Tachycardia [Recovered/Resolved]
  - Respiratory distress [Recovered/Resolved]
  - Rash [Recovered/Resolved]

NARRATIVE: CASE EVENT DATE: 20201016
